FAERS Safety Report 8496440-4 (Version None)
Quarter: 2012Q3

REPORT INFORMATION
  Report Type: 
  Country: None (occurrence: None)
  Receive Date: 20120709
  Receipt Date: 20120626
  Transmission Date: 20120928
  Serious: No
  Sender: FDA-Public Use
  Company Number: US-ASTRAZENECA-2012SE36265

PATIENT
  Age: 26 Year
  Sex: Female

DRUGS (2)
  1. SYMBICORT [Suspect]
     Dosage: 80/4.5 MCG, UNKNOWN
     Route: 055
  2. RESCUE INHALER [Concomitant]

REACTIONS (2)
  - ASTHMA [None]
  - MATERNAL EXPOSURE DURING PREGNANCY [None]
